FAERS Safety Report 5983035-7 (Version None)
Quarter: 2008Q4

REPORT INFORMATION
  Report Type: 
  Country: None (occurrence: None)
  Receive Date: 20081205
  Receipt Date: 20081205
  Transmission Date: 20090506
  Serious: Yes (Life-Threatening, Hospitalization, Other)
  Sender: FDA-Public Use
  Company Number: None

PATIENT
  Age: 36 Year
  Sex: Male
  Weight: 129.7287 kg

DRUGS (1)
  1. PREDNISOLONE ACETATE [Suspect]
     Indication: SINUSITIS
     Dates: start: 20081118, end: 20081120

REACTIONS (2)
  - INCORRECT ROUTE OF DRUG ADMINISTRATION [None]
  - PSYCHOTIC DISORDER [None]
